FAERS Safety Report 7507293-2 (Version None)
Quarter: 2011Q2

REPORT INFORMATION
  Report Type: 
  Country: None (occurrence: None)
  Receive Date: 20110526
  Receipt Date: 20110519
  Transmission Date: 20111010
  Serious: Yes (Other)
  Sender: FDA-Public Use
  Company Number: RO-GENENTECH-319310

PATIENT
  Sex: Female

DRUGS (4)
  1. DHC [Concomitant]
     Indication: RHEUMATOID ARTHRITIS
     Dosage: 60 MG, UNK
     Route: 048
  2. RITUXAN [Suspect]
     Indication: RHEUMATOID ARTHRITIS
     Dosage: 1000 MG, Q2W
     Route: 042
     Dates: start: 20080901, end: 20100901
  3. ARAVA [Concomitant]
     Indication: RHEUMATOID ARTHRITIS
     Dosage: UNK
     Route: 048
  4. CELEBREX [Concomitant]
     Indication: RHEUMATOID ARTHRITIS
     Dosage: 200 MG, UNK
     Route: 048

REACTIONS (1)
  - PSORIASIS [None]
